FAERS Safety Report 24390699 (Version 1)
Quarter: 2024Q4

REPORT INFORMATION
  Report Type: Spontaneous
  Country: DK (occurrence: DK)
  Receive Date: 20241003
  Receipt Date: 20241003
  Transmission Date: 20250114
  Serious: Yes (Death, Other)
  Sender: STRIDES
  Company Number: DK-STRIDES ARCOLAB LIMITED-2024SP012616

PATIENT
  Age: 69 Year
  Sex: Male

DRUGS (7)
  1. METHOTREXATE [Suspect]
     Active Substance: METHOTREXATE
     Indication: Bing-Neel syndrome
     Dosage: UNK
     Route: 065
     Dates: start: 201905
  2. RITUXIMAB [Suspect]
     Active Substance: RITUXIMAB
     Indication: Bing-Neel syndrome
     Dosage: UNK
     Route: 065
     Dates: start: 201905
  3. PROCARBAZINE [Suspect]
     Active Substance: PROCARBAZINE
     Indication: Bing-Neel syndrome
     Dosage: UNK
     Route: 065
     Dates: start: 201905
  4. VINCRISTINE [Suspect]
     Active Substance: VINCRISTINE
     Indication: Bing-Neel syndrome
     Dosage: UNK
     Route: 065
     Dates: start: 201905
  5. TEMOZOLOMIDE [Suspect]
     Active Substance: TEMOZOLOMIDE
     Indication: Glioblastoma
     Dosage: UNK
     Route: 065
     Dates: start: 2020
  6. IBRUTINIB [Suspect]
     Active Substance: IBRUTINIB
     Indication: Bing-Neel syndrome
     Dosage: UNK
     Route: 065
     Dates: start: 2019, end: 201905
  7. IBRUTINIB [Suspect]
     Active Substance: IBRUTINIB
     Dosage: UNK
     Route: 065
     Dates: start: 201908

REACTIONS (3)
  - Death [Fatal]
  - Toxicity to various agents [Unknown]
  - Off label use [Unknown]

NARRATIVE: CASE EVENT DATE: 20190101
